FAERS Safety Report 5153395-8 (Version None)
Quarter: 2006Q4

REPORT INFORMATION
  Report Type: 
  Country: None (occurrence: None)
  Receive Date: 20061110
  Receipt Date: 20061103
  Transmission Date: 20070319
  Serious: Yes (Hospitalization)
  Sender: FDA-Public Use
  Company Number: HQWYE042108JUN06

PATIENT
  Age: 58 Year
  Sex: Male

DRUGS (15)
  1. RAPAMUNE [Suspect]
     Indication: PROPHYLAXIS AGAINST TRANSPLANT REJECTION
     Dosage: 8 MG 1X PER 1 DAY; ORAL
     Route: 048
     Dates: start: 20060416, end: 20060609
  2. MYCOPHENOLATE MOFETIL [Concomitant]
  3. PREDNISOLONE [Concomitant]
  4. PREDNISOLONE [Concomitant]
  5. ACETAMINOPHEN [Concomitant]
  6. FUROSEMIDE [Concomitant]
  7. ATORVASTATIN CALCIUM [Concomitant]
  8. ALFACALCIDOL [Concomitant]
  9. SODIUM BICARBONATE [Concomitant]
  10. NIFEDIPINE [Concomitant]
  11. SENNA [Concomitant]
  12. LANSOPRAZOLE [Concomitant]
  13. COTRIM [Concomitant]
  14. DOXAZOSIN MESYLATE [Concomitant]
  15. AQUEOUS (EMULSIFYING WAX/PARAFIN, LIQUID/WHITE SOFT PARAFIN) [Concomitant]

REACTIONS (6)
  - BLOOD PRESSURE INCREASED [None]
  - DEHYDRATION [None]
  - DRUG INEFFECTIVE [None]
  - INFECTION [None]
  - KIDNEY TRANSPLANT REJECTION [None]
  - OEDEMA [None]
